FAERS Safety Report 19323791 (Version 2)
Quarter: 2021Q2

REPORT INFORMATION
  Report Type: Spontaneous
  Country: ES (occurrence: ES)
  Receive Date: 20210528
  Receipt Date: 20210605
  Transmission Date: 20210717
  Serious: Yes (Death, Other)
  Sender: FDA-Public Use
  Company Number: ES-ORPHANEU-2021001900

PATIENT

DRUGS (5)
  1. CARBAGLU [Suspect]
     Active Substance: CARGLUMIC ACID
     Indication: HYPERGLYCINAEMIA
     Dosage: 600 MILLIGRAM, Q8H, GASTROSTOMY
     Route: 048
     Dates: start: 2018, end: 2021
  2. Q?10 [Concomitant]
     Indication: HYPERGLYCINAEMIA
     Dosage: 150 MILLIGRAM, QD
     Route: 048
     Dates: start: 2003
  3. CARBAGLU [Suspect]
     Active Substance: CARGLUMIC ACID
     Indication: HYPERAMMONAEMIA
  4. BISOPROLOL [Concomitant]
     Active Substance: BISOPROLOL
     Indication: ELECTROCARDIOGRAM QT PROLONGED
     Dosage: 2.5 MILLIGRAM, QD
     Route: 048
  5. L?CARNITINE [Concomitant]
     Active Substance: LEVOCARNITINE
     Indication: HYPERGLYCINAEMIA
     Dosage: 1 GRAM, QD
     Route: 048
     Dates: start: 2003

REACTIONS (1)
  - Sudden death [Fatal]

NARRATIVE: CASE EVENT DATE: 20210502
